FAERS Safety Report 24122755 (Version 2)
Quarter: 2024Q3

REPORT INFORMATION
  Report Type: Spontaneous
  Country: US (occurrence: US)
  Receive Date: 20240723
  Receipt Date: 20240809
  Transmission Date: 20241017
  Serious: No
  Sender: NOVO NORDISK
  Company Number: US-NOVOPROD-1256980

PATIENT
  Age: 73 Year
  Sex: Female

DRUGS (1)
  1. OZEMPIC [Suspect]
     Active Substance: SEMAGLUTIDE
     Indication: Product used for unknown indication
     Dosage: UNK
     Route: 058
     Dates: start: 20231130

REACTIONS (3)
  - Cataract operation [Recovered/Resolved]
  - Dry eye [Recovered/Resolved]
  - VIth nerve disorder [Recovered/Resolved]

NARRATIVE: CASE EVENT DATE: 20240101
